FAERS Safety Report 9709744 (Version 1)
Quarter: 2013Q4

REPORT INFORMATION
  Report Type: Report from Study
  Country: US (occurrence: US)
  Receive Date: 20131126
  Receipt Date: 20131126
  Transmission Date: 20140711
  Serious: Yes (Other)
  Sender: FDA-Public Use
  Company Number: US-ROCHE-1298178

PATIENT
  Sex: Male

DRUGS (12)
  1. LUCENTIS [Suspect]
     Indication: AGE-RELATED MACULAR DEGENERATION
     Route: 065
  2. AVASTIN [Suspect]
     Indication: AGE-RELATED MACULAR DEGENERATION
     Route: 065
  3. NORVASC [Concomitant]
     Dosage: ONCE A DAY
     Route: 065
  4. ASPIRIN [Concomitant]
     Dosage: DAILY
     Route: 065
  5. LIPITOR [Concomitant]
     Dosage: DAILY
     Route: 065
  6. AVODART [Concomitant]
     Dosage: Q AM
     Route: 065
  7. LEXAPRO [Concomitant]
     Dosage: DAILY
     Route: 065
  8. GLUCOTROL [Concomitant]
     Dosage: DAILY
     Route: 065
  9. PRILOSEC [Concomitant]
     Dosage: DAILY
     Route: 065
  10. INDERAL [Concomitant]
     Route: 065
  11. EVISTA [Concomitant]
     Dosage: DAILY
     Route: 065
  12. ACTOS [Concomitant]
     Dosage: EVERY MORNING
     Route: 048

REACTIONS (3)
  - Blindness [Not Recovered/Not Resolved]
  - Visual acuity reduced [Not Recovered/Not Resolved]
  - Off label use [Unknown]
